FAERS Safety Report 23090180 (Version 1)
Quarter: 2023Q4

REPORT INFORMATION
  Report Type: Spontaneous
  Country: US (occurrence: US)
  Receive Date: 20231020
  Receipt Date: 20231020
  Transmission Date: 20240110
  Serious: No
  Sender: FDA-Public Use
  Company Number: US-GLAXOSMITHKLINE-US2023AMR144861

PATIENT
  Sex: Female
  Weight: 65.76 kg

DRUGS (1)
  1. ZEJULA [Suspect]
     Active Substance: NIRAPARIB
     Indication: Ovarian cancer
     Dosage: 200 MG, QD
     Dates: start: 20230718

REACTIONS (4)
  - Fatigue [Recovering/Resolving]
  - Cough [Unknown]
  - Rhinorrhoea [Unknown]
  - Hot flush [Unknown]
